FAERS Safety Report 8516612-X (Version None)
Quarter: 2012Q2

REPORT INFORMATION
  Report Type: 
  Country: None (occurrence: None)
  Receive Date: 20120406
  Receipt Date: 20090707
  Transmission Date: 20120825
  Serious: Yes (Death)
  Sender: FDA-Public Use
  Company Number: PHEH2008US11545

PATIENT
  Age: 60 Year

DRUGS (1)
  1. TASIGNA [Suspect]
     Indication: ACUTE LYMPHOCYTIC LEUKAEMIA RECURRENT
     Dosage: 200 MG, BID, ORAL
     Route: 048
     Dates: start: 20070817

REACTIONS (1)
  - ACUTE LYMPHOCYTIC LEUKAEMIA RECURRENT [None]
